FAERS Safety Report 24070385 (Version 1)
Quarter: 2024Q3

REPORT INFORMATION
  Report Type: Spontaneous
  Country: US (occurrence: None)
  Receive Date: 20240709
  Receipt Date: 20240709
  Transmission Date: 20241016
  Serious: Yes (Life-Threatening)
  Sender: Public
  Company Number: None

PATIENT
  Age: 78 Year
  Sex: Male
  Weight: 99.8 kg

DRUGS (2)
  1. DAPTOMYCIN [Suspect]
     Active Substance: DAPTOMYCIN
     Indication: Wound infection staphylococcal
     Dosage: 800 MG DAILY INTRAVENOUS
     Route: 042
     Dates: start: 20240609, end: 20240623
  2. CEFTAROLINE [Concomitant]
     Active Substance: CEFTAROLINE
     Dates: start: 20240607

REACTIONS (1)
  - Eosinophilic pneumonia [None]

NARRATIVE: CASE EVENT DATE: 20240623
